FAERS Safety Report 25866688 (Version 1)
Quarter: 2025Q3

REPORT INFORMATION
  Report Type: Spontaneous
  Country: US (occurrence: US)
  Receive Date: 20250930
  Receipt Date: 20250930
  Transmission Date: 20251020
  Serious: Yes (Other)
  Sender: BRISTOL-MYERS SQUIBB COMPANY
  Company Number: US-BRISTOL-MYERS SQUIBB COMPANY-2025-132059

PATIENT
  Age: 69 Year
  Sex: Female

DRUGS (1)
  1. SOTYKTU [Suspect]
     Active Substance: DEUCRAVACITINIB
     Indication: Psoriasis
     Dosage: DAILY
     Dates: start: 202503

REACTIONS (2)
  - Pneumonia [Recovered/Resolved]
  - Pelvic mass [Unknown]

NARRATIVE: CASE EVENT DATE: 20250101
